FAERS Safety Report 10047159 (Version 1)
Quarter: 2014Q1

REPORT INFORMATION
  Report Type: Spontaneous
  Country: US (occurrence: US)
  Receive Date: 20140331
  Receipt Date: 20140331
  Transmission Date: 20141002
  Serious: No
  Sender: FDA-Public Use
  Company Number: US-MYLANLABS-2013S1013965

PATIENT
  Age: 51 Year
  Sex: Male
  Weight: 85.28 kg

DRUGS (6)
  1. FENTANYL TRANSDERMAL SYSTEM [Suspect]
     Indication: PAIN
     Dosage: CHANGES Q 48HR
     Route: 062
     Dates: start: 201203
  2. GABAPENTIN [Concomitant]
     Route: 048
  3. SAVELLA [Concomitant]
     Route: 048
  4. AMBIEN [Concomitant]
     Route: 048
  5. TOPROL [Concomitant]
     Route: 048
  6. LOSARTAN [Concomitant]
     Route: 048

REACTIONS (7)
  - Drug effect decreased [Not Recovered/Not Resolved]
  - Pain [Not Recovered/Not Resolved]
  - Nausea [Not Recovered/Not Resolved]
  - Hyperhidrosis [Not Recovered/Not Resolved]
  - Contusion [Not Recovered/Not Resolved]
  - Application site rash [Not Recovered/Not Resolved]
  - Wrong technique in drug usage process [Recovered/Resolved]
